FAERS Safety Report 5867596-4 (Version None)
Quarter: 2008Q3

REPORT INFORMATION
  Report Type: 
  Country: None (occurrence: None)
  Receive Date: 20080902
  Receipt Date: 20071023
  Transmission Date: 20090109
  Serious: No
  Sender: FDA-Public Use
  Company Number: US-ABBOTT-07P-163-0422278-00

PATIENT
  Sex: Female
  Weight: 109 kg

DRUGS (2)
  1. DEPAKOTE ER [Suspect]
     Indication: EPILEPSY
     Route: 048
     Dates: start: 20061001
  2. CANNABIS SATIVA [Suspect]
     Indication: DRUG DEPENDENCE
     Route: 055

REACTIONS (3)
  - ANXIETY [None]
  - HALLUCINATION [None]
  - NERVOUSNESS [None]
